FAERS Safety Report 22316649 (Version 1)
Quarter: 2023Q2

REPORT INFORMATION
  Report Type: Spontaneous
  Country: US (occurrence: US)
  Receive Date: 20230514
  Receipt Date: 20230514
  Transmission Date: 20230721
  Serious: Yes (Hospitalization, Other)
  Sender: FDA-Public Use
  Company Number: US-IHL-000066

PATIENT
  Age: 52 Year
  Sex: Male

DRUGS (1)
  1. OLMESARTAN MEDOXOMIL [Suspect]
     Active Substance: OLMESARTAN MEDOXOMIL
     Indication: Hypertension
     Route: 065

REACTIONS (4)
  - Ischaemic enteritis [Recovered/Resolved]
  - Intestinal perforation [Unknown]
  - Tachycardia [Unknown]
  - Sepsis [Unknown]
